FAERS Safety Report 8605479-7 (Version None)
Quarter: 2012Q3

REPORT INFORMATION
  Report Type: 
  Country: None (occurrence: None)
  Receive Date: 20120820
  Receipt Date: 20120816
  Transmission Date: 20120928
  Serious: Yes (Death)
  Sender: FDA-Public Use
  Company Number: US-JNJFOC-20120808504

PATIENT
  Age: 83 Year
  Sex: Female

DRUGS (9)
  1. REGLAN [Concomitant]
     Route: 042
  2. DEXTROSE 5% [Concomitant]
     Route: 042
  3. XARELTO [Suspect]
     Indication: THROMBOSIS PROPHYLAXIS
     Route: 048
     Dates: start: 20120809, end: 20120809
  4. ASCORBIC ACID [Concomitant]
  5. FOLIC ACID [Concomitant]
  6. XARELTO [Suspect]
     Indication: HIP FRACTURE
     Route: 048
     Dates: start: 20120809, end: 20120809
  7. TYLENOL [Suspect]
     Indication: PRODUCT USED FOR UNKNOWN INDICATION
     Route: 048
  8. TYLENOL [Suspect]
     Route: 048
  9. NORCO [Concomitant]
     Dosage: 5/325

REACTIONS (1)
  - PULMONARY EMBOLISM [None]
